FAERS Safety Report 9196712 (Version 2)
Quarter: 2013Q3

REPORT INFORMATION
  Report Type: Spontaneous
  Country: US (occurrence: None)
  Receive Date: 20120709
  Receipt Date: 20130724
  Transmission Date: 20140515
  Serious: Yes (Hospitalization)
  Sender: FDA-Public Use
  Company Number: PHEH2012US003869

PATIENT
  Age: 80 Year
  Sex: Female

DRUGS (1)
  1. GLEEVEC (IMATINIB) [Suspect]
     Indication: CHRONIC MYELOID LEUKAEMIA
     Route: 048
     Dates: start: 20071016

REACTIONS (7)
  - Myocardial infarction [None]
  - Nausea [None]
  - Vomiting [None]
  - Gastritis [None]
  - Contusion [None]
  - Oedema [None]
  - Fall [None]
